FAERS Safety Report 17026535 (Version 1)
Quarter: 2019Q4

REPORT INFORMATION
  Report Type: Spontaneous
  Country: IT (occurrence: IT)
  Receive Date: 20191113
  Receipt Date: 20191113
  Transmission Date: 20200122
  Serious: Yes (Other)
  Sender: FDA-Public Use
  Company Number: IT-PFIZER INC-2019484027

PATIENT
  Age: 42 Year
  Sex: Female

DRUGS (1)
  1. ZITROMAX [Suspect]
     Active Substance: AZITHROMYCIN
     Dosage: UNK

REACTIONS (2)
  - Tremor [Recovering/Resolving]
  - Malaise [Recovering/Resolving]

NARRATIVE: CASE EVENT DATE: 20190503
